FAERS Safety Report 9128764 (Version 1)
Quarter: 2013Q1

REPORT INFORMATION
  Report Type: Spontaneous
  Country: US (occurrence: US)
  Receive Date: 20130228
  Receipt Date: 20130228
  Transmission Date: 20140127
  Serious: No
  Sender: FDA-Public Use
  Company Number: US-ABBOTT-13P-163-1048043-00

PATIENT
  Age: 58 Year
  Sex: Male
  Weight: 72.64 kg

DRUGS (11)
  1. ANDROGEL [Suspect]
     Indication: BLOOD TESTOSTERONE DECREASED
     Dosage: 40.5 MG, 2 PUMPS DAILY
     Route: 061
  2. ANDROGEL [Suspect]
     Dosage: 81 MG, 4 PUMPS DAILY
     Route: 061
     Dates: start: 2012, end: 2012
  3. ANDROGEL [Suspect]
     Dosage: EVERY OTHER DAY 3 PUMPS AND EVERY OTHER DAY 4 PUMPS: ALTERNATING THE DOSE EVERY OTHER DAY.
     Route: 061
     Dates: start: 2012
  4. AVALIDE [Concomitant]
     Indication: PRODUCT USED FOR UNKNOWN INDICATION
  5. VYTORIN [Concomitant]
     Indication: PRODUCT USED FOR UNKNOWN INDICATION
     Dosage: 1/2 PILL, ONCE DAILY
  6. ASPIRIN [Concomitant]
     Indication: PRODUCT USED FOR UNKNOWN INDICATION
     Route: 048
  7. CELEBREX [Concomitant]
     Indication: PRODUCT USED FOR UNKNOWN INDICATION
     Route: 048
  8. LEVITRA [Concomitant]
     Indication: PRODUCT USED FOR UNKNOWN INDICATION
  9. MULTIVITAMIN [Concomitant]
     Indication: PRODUCT USED FOR UNKNOWN INDICATION
  10. FISH OIL [Concomitant]
     Indication: PRODUCT USED FOR UNKNOWN INDICATION
  11. OSTEOBIFLEX [Concomitant]
     Indication: ARTHROPATHY

REACTIONS (6)
  - Application site irritation [Not Recovered/Not Resolved]
  - Application site erosion [Not Recovered/Not Resolved]
  - Libido increased [Not Recovered/Not Resolved]
  - Therapeutic response unexpected [Not Recovered/Not Resolved]
  - Blood testosterone decreased [Not Recovered/Not Resolved]
  - Application site erythema [Not Recovered/Not Resolved]
